FAERS Safety Report 12615249 (Version 1)
Quarter: 2016Q3

REPORT INFORMATION
  Report Type: Spontaneous
  Country: BR (occurrence: BR)
  Receive Date: 20160802
  Receipt Date: 20160802
  Transmission Date: 20161109
  Serious: Yes (Hospitalization)
  Sender: FDA-Public Use
  Company Number: BR-MYLANLABS-2016M1031490

PATIENT

DRUGS (1)
  1. METHOTREXATE. [Suspect]
     Active Substance: METHOTREXATE
     Indication: PSORIASIS
     Dosage: INGESTED 10 MG DAILY WHILE THE PRESCRIBED DOSAGE WAS 10MG WEEKLY
     Route: 048

REACTIONS (4)
  - Mouth ulceration [Recovered/Resolved]
  - Skin ulcer [Recovered/Resolved]
  - Toxicity to various agents [Recovered/Resolved]
  - Drug administration error [Recovered/Resolved]
